FAERS Safety Report 4930329-X (Version None)
Quarter: 2006Q1

REPORT INFORMATION
  Report Type: 
  Country: None (occurrence: None)
  Receive Date: 20060227
  Receipt Date: 20060216
  Transmission Date: 20060701
  Serious: Yes (Hospitalization, Other)
  Sender: FDA-Public Use
  Company Number: 2005BI009597

PATIENT
  Age: 38 Year
  Sex: Female
  Weight: 79.3795 kg

DRUGS (2)
  1. AVONEX [Suspect]
     Indication: MULTIPLE SCLEROSIS
     Dosage: 30 UG QW IM
     Route: 030
     Dates: start: 20050405, end: 20050501
  2. WELLBUTRIN [Concomitant]

REACTIONS (2)
  - BREAST CANCER IN SITU [None]
  - OVARIAN CANCER [None]
